FAERS Safety Report 9970023 (Version 1)
Quarter: 2014Q1

REPORT INFORMATION
  Report Type: Spontaneous
  Country: FR (occurrence: None)
  Receive Date: 20140304
  Receipt Date: 20140304
  Transmission Date: 20141002
  Serious: Yes (Hospitalization)
  Sender: FDA-Public Use
  Company Number: 2014FR003042

PATIENT
  Age: 61 Year
  Sex: Male

DRUGS (23)
  1. ICLUSIG [Suspect]
     Indication: ACUTE LYMPHOCYTIC LEUKAEMIA
     Route: 048
     Dates: start: 201312
  2. BEVITINE (THISMINE HYDROCHLORIDE) [Concomitant]
  3. PYRIDOXINE (PYRIDOXINE HYDROCHLORIDE) [Concomitant]
  4. VITAMIN K (MENADIONE) [Concomitant]
  5. TIENAM (CILASTATIN SODIUM, IMIPENEM) [Concomitant]
  6. BACTRIM (SULFAMETHOXAZOLE, TRIMETHOPRIM) [Concomitant]
  7. ACUPAN (NEFOPAM HYDROCHLORIDE) [Concomitant]
  8. SPASFON (PHLOROGLUCINOL, TRIMETHYLPHLOROGLUINOL) [Concomitant]
  9. LEDERFOLINE (CALCIUM FOILNATE) [Concomitant]
  10. MOPRAL (OMEPRAZOLE) [Concomitant]
  11. LARGACTIL (CHLORPROMAZINE) (CHLORPROMAZINE) [Concomitant]
  12. LOVENOX (ENOXAPARIN SODIUM) [Concomitant]
  13. PHOCYTAN (GLUCOSE 1 PHOSPHATE DISODIUM) [Concomitant]
  14. NOVORAPID (INSULIN ASP) [Concomitant]
  15. DEXERYL (CHLORPHENAMINE MALEATE, DEXTROMETHORPHAN HYDROBROMIDE, GUAIFENESIN, PHENYLEPHRINE HYDROCHLORIDE) [Concomitant]
  16. TAHOR (ATORVASTATIN CALCIUM) [Concomitant]
  17. DIFFU K (POTASSIUM CHLORIDE) (POTASSIUM CHLORIDE) [Concomitant]
  18. NEORAL (CICLOSPORIN) [Concomitant]
  19. ZELITREX (VALACICLOVIR HYDROCHLORIDE) (VALACICLOVIR HYDROCHLORIDE) [Concomitant]
  20. CORTANCYL (PREDNISONE) [Concomitant]
  21. UVEDOSE (COLECALCIFEROL) [Concomitant]
  22. LANTUS (INSULIN GLARGINE) [Concomitant]
  23. KABIVEN (ALANINE, ARGININE, ASPARTIC ACID, CALCIUM CHLORIDE DIHYDRATE, GLUCOSE MONOHYDRATE, GLUTAMIC ACID, GLYCINE, GLYCINE MAX SEED OIL, HISTIDINE, ISOLEUCINE, LEUCINE, LYSINE HYDROCHLORIDE, MAGNESIUM SULFATE HEPTAHYDRATE, METHIONINE, PHENYLALANINE, POT [Concomitant]

REACTIONS (1)
  - Major depression [None]
